FAERS Safety Report 17875057 (Version 1)
Quarter: 2020Q2

REPORT INFORMATION
  Report Type: Spontaneous
  Country: US (occurrence: US)
  Receive Date: 20200608
  Receipt Date: 20200608
  Transmission Date: 20200714
  Serious: Yes (Other)
  Sender: FDA-Public Use
  Company Number: None

PATIENT
  Age: 63 Year
  Sex: Male
  Weight: 75.8 kg

DRUGS (22)
  1. DOBUTAMINE [Concomitant]
     Active Substance: DOBUTAMINE HYDROCHLORIDE
     Dates: start: 20200608
  2. VITAMIN C [Concomitant]
     Active Substance: ASCORBIC ACID
     Dates: start: 20200607
  3. BENZONATATE. [Concomitant]
     Active Substance: BENZONATATE
     Dates: start: 20200607
  4. ENOXAPARIN [Concomitant]
     Active Substance: ENOXAPARIN
     Dates: start: 20200607, end: 20200607
  5. FENTANYL. [Concomitant]
     Active Substance: FENTANYL
  6. HYDROCORTISONE. [Concomitant]
     Active Substance: HYDROCORTISONE
     Dates: start: 20200607
  7. MIDAZOLAM. [Concomitant]
     Active Substance: MIDAZOLAM
     Dates: start: 20200608
  8. ATORVASTATIN [Concomitant]
     Active Substance: ATORVASTATIN
     Dates: start: 20200607
  9. EPOPROSTENOL. [Concomitant]
     Active Substance: EPOPROSTENOL
     Dates: start: 20200607
  10. THIAMINE. [Concomitant]
     Active Substance: THIAMINE
     Dates: start: 20200607
  11. CALCIUM GLUCONATE. [Concomitant]
     Active Substance: CALCIUM GLUCONATE
     Dates: end: 20200608
  12. PHENYLEPHRINE [Concomitant]
     Active Substance: PHENYLEPHRINE HYDROCHLORIDE
     Dates: start: 20200607
  13. PROPOFOL. [Concomitant]
     Active Substance: PROPOFOL
     Dates: start: 20200607
  14. REMDESIVIR. [Suspect]
     Active Substance: REMDESIVIR
  15. FAMOTIDINE. [Concomitant]
     Active Substance: FAMOTIDINE
     Dates: start: 20200607
  16. NOREPINEPHRINE. [Concomitant]
     Active Substance: NOREPINEPHRINE
     Dates: start: 20200608
  17. ETOMIDATE. [Concomitant]
     Active Substance: ETOMIDATE
     Dates: start: 20200607, end: 20200607
  18. ASPIRIN. [Concomitant]
     Active Substance: ASPIRIN
     Dates: start: 20200607
  19. HEPARIN [Concomitant]
     Active Substance: HEPARIN SODIUM
     Dates: start: 20200608
  20. ATRACURIUM [Concomitant]
     Active Substance: ATRACURIUM
  21. CEFTRIAXONE. [Concomitant]
     Active Substance: CEFTRIAXONE
     Dates: start: 20200607
  22. AZITHROMYCIN ANHYDROUS. [Concomitant]
     Active Substance: AZITHROMYCIN ANHYDROUS
     Dates: start: 20200607

REACTIONS (6)
  - Respiratory distress [None]
  - White blood cell count increased [None]
  - Alanine aminotransferase increased [None]
  - Troponin increased [None]
  - Procalcitonin increased [None]
  - Aspartate aminotransferase increased [None]

NARRATIVE: CASE EVENT DATE: 20200608
